FAERS Safety Report 8215306-8 (Version None)
Quarter: 2012Q1

REPORT INFORMATION
  Report Type: 
  Country: None (occurrence: None)
  Receive Date: 20120316
  Receipt Date: 20120312
  Transmission Date: 20120608
  Serious: Yes (Hospitalization)
  Sender: FDA-Public Use
  Company Number: US-B.I. PHARMACEUTICALS,INC./RIDGEFIELD-2012-BP-04739BP

PATIENT
  Sex: Female

DRUGS (12)
  1. ADVAIR DISKUS 100/50 [Concomitant]
     Indication: CHRONIC OBSTRUCTIVE PULMONARY DISEASE
     Route: 055
     Dates: start: 20060101
  2. SIMCOR [Concomitant]
     Route: 048
  3. ASCORBIC ACID [Concomitant]
     Route: 048
  4. SPIRIVA [Suspect]
     Route: 055
     Dates: start: 20101201
  5. VENTOLIN [Concomitant]
     Indication: CHRONIC OBSTRUCTIVE PULMONARY DISEASE
     Route: 055
  6. VENTOLIN [Concomitant]
     Indication: EMPHYSEMA
  7. SPIRIVA [Suspect]
     Indication: CHRONIC OBSTRUCTIVE PULMONARY DISEASE
     Route: 055
     Dates: start: 20080101, end: 20100216
  8. EFFIENT [Concomitant]
     Indication: PROPHYLAXIS
     Route: 048
     Dates: start: 20101201
  9. ASPIRIN [Concomitant]
     Indication: PROPHYLAXIS
     Dosage: 325 MG
     Route: 048
     Dates: start: 20101201
  10. ADVAIR DISKUS 100/50 [Concomitant]
     Indication: EMPHYSEMA
  11. CARTIA XT [Concomitant]
     Route: 048
     Dates: end: 20101201
  12. OXYGEN [Concomitant]
     Route: 045
     Dates: start: 20120301

REACTIONS (2)
  - MYOCARDIAL INFARCTION [None]
  - LUNG INFECTION [None]
